FAERS Safety Report 21974888 (Version 3)
Quarter: 2023Q2

REPORT INFORMATION
  Report Type: Report from Study
  Country: RO (occurrence: RO)
  Receive Date: 20230209
  Receipt Date: 20230426
  Transmission Date: 20230721
  Serious: Yes (Hospitalization)
  Sender: FDA-Public Use
  Company Number: RO-002147023-NVSC2023RO024816

PATIENT

DRUGS (10)
  1. RUXOLITINIB [Suspect]
     Active Substance: RUXOLITINIB
     Indication: Primary myelofibrosis
     Dosage: UNK (STRENGTH 10 MG)
     Route: 048
     Dates: start: 202101
  2. RUXOLITINIB [Suspect]
     Active Substance: RUXOLITINIB
     Dosage: UNK (STRENGTH 15 MG)
     Route: 048
  3. RUXOLITINIB [Suspect]
     Active Substance: RUXOLITINIB
     Dosage: 5 MG
     Route: 048
  4. RUXOLITINIB [Suspect]
     Active Substance: RUXOLITINIB
     Dosage: 10 MG
     Route: 048
  5. RUXOLITINIB [Suspect]
     Active Substance: RUXOLITINIB
     Dosage: 20 MG (10+10 MG, 1 IN THE MORNING ,1 IN THE EVENING)
     Route: 048
     Dates: start: 202208, end: 202209
  6. RUXOLITINIB [Suspect]
     Active Substance: RUXOLITINIB
     Dosage: 20 MG, BID (STRENGTH 20 MG)
     Route: 048
     Dates: start: 202211, end: 202212
  7. RUXOLITINIB [Suspect]
     Active Substance: RUXOLITINIB
     Dosage: 20 MG (1 IN THE MORNING, 1 IN THE EVENING)
     Route: 048
     Dates: end: 20230116
  8. TAROSIN [Concomitant]
     Indication: Primary myelofibrosis
     Dosage: UNK, TID (3X /DAY), (IN THE MORNING, NOON AND EVENING)
     Route: 065
  9. MAGNESIUM ASPARTATE\POTASSIUM ASPARTATE [Concomitant]
     Active Substance: MAGNESIUM ASPARTATE\POTASSIUM ASPARTATE
     Indication: Primary myelofibrosis
     Dosage: UNK, TID (3X /DAY), (IN THE MORNING, NOON AND EVENING)
     Route: 065
  10. CALCIUM LACTATE [Concomitant]
     Active Substance: CALCIUM LACTATE
     Indication: Primary myelofibrosis
     Dosage: UNK, TID (3X /DAY),  (IN THE MORNING, NOON AND EVENING)
     Route: 065

REACTIONS (7)
  - White blood cell count decreased [Not Recovered/Not Resolved]
  - Haemorrhage [Recovered/Resolved]
  - Product dose omission issue [Unknown]
  - Ill-defined disorder [Unknown]
  - Pruritus [Not Recovered/Not Resolved]
  - Epistaxis [Recovering/Resolving]
  - Chills [Recovered/Resolved]

NARRATIVE: CASE EVENT DATE: 20221208
